FAERS Safety Report 8439818-7 (Version None)
Quarter: 2012Q2

REPORT INFORMATION
  Report Type: 
  Country: None (occurrence: None)
  Receive Date: 20120615
  Receipt Date: 20120612
  Transmission Date: 20120825
  Serious: Yes (Other)
  Sender: FDA-Public Use
  Company Number: GB-PFIZER INC-2012140814

PATIENT
  Age: 63 Year
  Sex: Female

DRUGS (5)
  1. LEVOTHYROXINE [Concomitant]
  2. ACETYLSALICYLIC ACID [Concomitant]
  3. RAMIPRIL [Concomitant]
  4. OMEPRAZOLE [Concomitant]
  5. AMLODIPINE BESYLATE [Suspect]
     Indication: HYPERTENSION
     Dosage: 5 MG, 1X/DAY
     Route: 048

REACTIONS (4)
  - DIARRHOEA [None]
  - WEIGHT DECREASED [None]
  - MALAISE [None]
  - MOUTH ULCERATION [None]
